FAERS Safety Report 7066921-9 (Version None)
Quarter: 2010Q4

REPORT INFORMATION
  Report Type: 
  Country: None (occurrence: None)
  Receive Date: 20101028
  Receipt Date: 20101020
  Transmission Date: 20110411
  Serious: Yes (Hospitalization)
  Sender: FDA-Public Use
  Company Number: US-BIOGENIDEC-2010BI036257

PATIENT
  Age: 52 Year
  Sex: Female
  Weight: 82 kg

DRUGS (1)
  1. AVONEX [Suspect]
     Indication: MULTIPLE SCLEROSIS
     Route: 030
     Dates: start: 20080101

REACTIONS (8)
  - ABNORMAL BEHAVIOUR [None]
  - ARTHRALGIA [None]
  - BURNING SENSATION [None]
  - GOUT [None]
  - HIP ARTHROPLASTY [None]
  - JOINT SWELLING [None]
  - PRURITUS [None]
  - RESTLESSNESS [None]
